FAERS Safety Report 5040009-0 (Version None)
Quarter: 2006Q2

REPORT INFORMATION
  Report Type: 
  Country: None (occurrence: None)
  Receive Date: 20060630
  Receipt Date: 20060621
  Transmission Date: 20061013
  Serious: Yes (Other)
  Sender: FDA-Public Use
  Company Number: SE-JNJFOC-20060604477

PATIENT
  Age: 3 Decade
  Sex: Female

DRUGS (1)
  1. SPORANOX [Suspect]
     Indication: PROPHYLAXIS
     Route: 065

REACTIONS (1)
  - EPILEPSY [None]
